FAERS Safety Report 18072029 (Version 3)
Quarter: 2020Q3

REPORT INFORMATION
  Report Type: Spontaneous
  Country: US (occurrence: US)
  Receive Date: 20200727
  Receipt Date: 20200901
  Transmission Date: 20201103
  Serious: No
  Sender: FDA-Public Use
  Company Number: US-PFIZER INC-2020283887

PATIENT
  Sex: Female

DRUGS (1)
  1. PANTOPRAZOLE [Suspect]
     Active Substance: PANTOPRAZOLE
     Dosage: 40 MG, 1X/DAY (ONE EACH MORNING FOR 3 DAYS)

REACTIONS (4)
  - Fall [Unknown]
  - Skin laceration [Unknown]
  - Vertigo [Unknown]
  - Dizziness [Unknown]
